FAERS Safety Report 19738292 (Version 1)
Quarter: 2021Q3

REPORT INFORMATION
  Report Type: Report from Study
  Country: None (occurrence: US)
  Receive Date: 20210824
  Receipt Date: 20210824
  Transmission Date: 20211014
  Serious: Yes (Other)
  Sender: FDA-Public Use
  Company Number: US-ABBVIE-21K-163-4050484-00

PATIENT
  Sex: Male

DRUGS (1)
  1. HUMIRA [Suspect]
     Active Substance: ADALIMUMAB
     Indication: PSORIASIS
     Route: 058

REACTIONS (4)
  - Heart valve replacement [Recovering/Resolving]
  - Macular degeneration [Not Recovered/Not Resolved]
  - Prostate cancer [Recovered/Resolved]
  - Internal haemorrhage [Not Recovered/Not Resolved]
